FAERS Safety Report 10356609 (Version 3)
Quarter: 2014Q4

REPORT INFORMATION
  Report Type: Report from Study
  Country: BR (occurrence: BR)
  Receive Date: 20140801
  Receipt Date: 20141107
  Transmission Date: 20150528
  Serious: Yes (Other)
  Sender: FDA-Public Use
  Company Number: BR-US-EMD SERONO, INC.-7307746

PATIENT
  Age: 27 Year
  Sex: Male

DRUGS (1)
  1. REBIF [Suspect]
     Active Substance: INTERFERON BETA-1A
     Indication: MULTIPLE SCLEROSIS
     Dates: start: 20130926

REACTIONS (6)
  - Granuloma [Unknown]
  - Balance disorder [Not Recovered/Not Resolved]
  - Diplopia [Not Recovered/Not Resolved]
  - Disturbance in attention [None]
  - Nausea [Unknown]
  - Tinnitus [Not Recovered/Not Resolved]

NARRATIVE: CASE EVENT DATE: 201407
